FAERS Safety Report 21006523 (Version 1)
Quarter: 2022Q2

REPORT INFORMATION
  Report Type: Spontaneous
  Country: US (occurrence: US)
  Receive Date: 20220624
  Receipt Date: 20220624
  Transmission Date: 20220721
  Serious: No
  Sender: FDA-Public Use
  Company Number: US-JNJFOC-20220640972

PATIENT
  Age: 76 Year
  Sex: Female

DRUGS (3)
  1. PEPCID AC [Suspect]
     Active Substance: FAMOTIDINE
     Indication: Dyspepsia
     Dosage: STARTED COUPLE OF WEEKS AGO
     Route: 065
     Dates: start: 2022
  2. PEPCID AC [Suspect]
     Active Substance: FAMOTIDINE
     Indication: Antacid therapy
  3. PEPCID AC [Suspect]
     Active Substance: FAMOTIDINE
     Indication: Gastrooesophageal reflux disease

REACTIONS (1)
  - Weight decreased [Not Recovered/Not Resolved]
